FAERS Safety Report 21895040 (Version 4)
Quarter: 2023Q1

REPORT INFORMATION
  Report Type: Report from Study
  Country: US (occurrence: US)
  Receive Date: 20230122
  Receipt Date: 20230330
  Transmission Date: 20230418
  Serious: No
  Sender: FDA-Public Use
  Company Number: US-ABBVIE-4271750

PATIENT
  Sex: Female
  Weight: 83.46 kg

DRUGS (2)
  1. ORIAHNN [Suspect]
     Active Substance: ELAGOLIX SODIUM\ESTRADIOL\NORETHINDRONE
     Indication: Lymphoma
     Route: 048
     Dates: start: 20211128
  2. ORIAHNN [Suspect]
     Active Substance: ELAGOLIX SODIUM\ESTRADIOL\NORETHINDRONE
     Indication: Lymphoma
     Route: 048
     Dates: start: 20221128

REACTIONS (1)
  - Drug ineffective [Not Recovered/Not Resolved]
